FAERS Safety Report 19920247 (Version 1)
Quarter: 2021Q4

REPORT INFORMATION
  Report Type: Report from Study
  Country: US (occurrence: US)
  Receive Date: 20211005
  Receipt Date: 20211005
  Transmission Date: 20220303
  Serious: Yes (Death)
  Sender: FDA-Public Use
  Company Number: US-MERCK HEALTHCARE KGAA-9267805

PATIENT
  Age: 62 Year

DRUGS (1)
  1. BAVENCIO [Suspect]
     Active Substance: AVELUMAB
     Indication: Bladder cancer
     Dates: start: 20200624

REACTIONS (1)
  - Death [Fatal]

NARRATIVE: CASE EVENT DATE: 20210316
